FAERS Safety Report 13963822 (Version 1)
Quarter: 2017Q3

REPORT INFORMATION
  Report Type: Spontaneous
  Country: US (occurrence: None)
  Receive Date: 20170913
  Receipt Date: 20170913
  Transmission Date: 20171128
  Serious: Yes (Disabling)
  Sender: FDA-Public Use
  Company Number: None

PATIENT
  Age: 64 Year
  Sex: Female
  Weight: 65.77 kg

DRUGS (13)
  1. PROAIR HFA [Concomitant]
     Active Substance: ALBUTEROL SULFATE
  2. VITAMIN E [Concomitant]
     Active Substance: .ALPHA.-TOCOPHEROL
  3. FLUTICASONE. [Concomitant]
     Active Substance: FLUTICASONE
  4. KEPPRA [Concomitant]
     Active Substance: LEVETIRACETAM
  5. TOPIRAMATE. [Concomitant]
     Active Substance: TOPIRAMATE
  6. BENADRYL [Concomitant]
     Active Substance: DIPHENHYDRAMINE HYDROCHLORIDE
  7. GABAPENTIN. [Concomitant]
     Active Substance: GABAPENTIN
  8. EPIPEN [Concomitant]
     Active Substance: EPINEPHRINE
  9. WOMEN^S MULTIVITS [Concomitant]
  10. LEVOTHYROXINE. [Concomitant]
     Active Substance: LEVOTHYROXINE
  11. LEVOFLOXACIN 500MG [Suspect]
     Active Substance: LEVOFLOXACIN
     Indication: URINARY TRACT INFECTION
     Dosage: ONE EVERY DAY 10 PILLS TOOK 3 ONE EVERY DAY BY MOUTH
     Route: 048
     Dates: start: 20170815, end: 20170818
  12. LIPITOR [Concomitant]
     Active Substance: ATORVASTATIN CALCIUM
  13. ADVAIR HFA [Concomitant]
     Active Substance: FLUTICASONE PROPIONATE\SALMETEROL XINAFOATE

REACTIONS (2)
  - Joint swelling [None]
  - Oedema peripheral [None]

NARRATIVE: CASE EVENT DATE: 20170819
